FAERS Safety Report 24964068 (Version 1)
Quarter: 2025Q1

REPORT INFORMATION
  Report Type: Report from Study
  Country: US (occurrence: US)
  Receive Date: 20250213
  Receipt Date: 20250213
  Transmission Date: 20250409
  Serious: Yes (Hospitalization, Other)
  Sender: GILEAD
  Company Number: US-GILEAD-2025-0703405

PATIENT
  Sex: Female

DRUGS (29)
  1. AZTREONAM LYSINE [Suspect]
     Active Substance: AZTREONAM LYSINE
     Indication: Cystic fibrosis
     Dosage: 75 MG, INHALE 75 MG VIA NEBULIZER THREE TIMES DAILY
     Route: 055
     Dates: start: 20240413
  2. TOBRAMYCIN [Concomitant]
     Active Substance: TOBRAMYCIN
  3. OLANZAPINE [Concomitant]
     Active Substance: OLANZAPINE
  4. BANOPHEN [Concomitant]
     Active Substance: DIPHENHYDRAMINE HYDROCHLORIDE
  5. HEPARIN [Concomitant]
     Active Substance: HEPARIN SODIUM
  6. FLUCONAZOLE [Concomitant]
     Active Substance: FLUCONAZOLE
  7. SODIUM CHLORIDE [Concomitant]
     Active Substance: SODIUM CHLORIDE
  8. NALOXONE HYDROCHLORIDE [Concomitant]
     Active Substance: NALOXONE HYDROCHLORIDE
  9. NITROFURANTOIN [Concomitant]
     Active Substance: NITROFURANTOIN
  10. IRON [Concomitant]
     Active Substance: IRON
  11. KONVOMEP [Concomitant]
     Active Substance: OMEPRAZOLE\SODIUM BICARBONATE
  12. D VITE [Concomitant]
  13. CREON [Concomitant]
     Active Substance: PANCRELIPASE AMYLASE\PANCRELIPASE LIPASE\PANCRELIPASE PROTEASE
  14. COLISTIMETHATE [Concomitant]
     Active Substance: COLISTIMETHATE SODIUM
  15. CETIRIZINE [Concomitant]
     Active Substance: CETIRIZINE HYDROCHLORIDE
  16. BUDESONIDE [Concomitant]
     Active Substance: BUDESONIDE
  17. PROBIOTICS NOS [Concomitant]
     Active Substance: PROBIOTICS NOS
  18. LEVALBUTEROL [Concomitant]
     Active Substance: LEVALBUTEROL
  19. LANTUS [Concomitant]
     Active Substance: INSULIN GLARGINE
  20. TRIKAFTA [Concomitant]
     Active Substance: ELEXACAFTOR\IVACAFTOR\TEZACAFTOR
  21. STERILE WATER [Concomitant]
     Active Substance: WATER
  22. SELENIUM [Concomitant]
     Active Substance: SELENIUM
  23. PULMOZYME [Concomitant]
     Active Substance: DORNASE ALFA
  24. POTASSIUM CHLORIDE [Concomitant]
     Active Substance: POTASSIUM CHLORIDE
  25. OXYCODONE [Concomitant]
     Active Substance: OXYCODONE
  26. NYSTATIN [Concomitant]
     Active Substance: NYSTATIN
  27. MAGNESIUM GLUCONATE [Concomitant]
     Active Substance: MAGNESIUM GLUCONATE
  28. GLUTAMINE [Concomitant]
     Active Substance: GLUTAMINE
  29. AZITHROMYCIN [Concomitant]
     Active Substance: AZITHROMYCIN

REACTIONS (9)
  - Cystic fibrosis respiratory infection suppression [Unknown]
  - Dyspnoea [Unknown]
  - Infection [Unknown]
  - Infective pulmonary exacerbation of cystic fibrosis [Unknown]
  - Pain [Unknown]
  - Fatigue [Unknown]
  - Sleep disorder [Unknown]
  - Loss of personal independence in daily activities [Unknown]
  - Social problem [Unknown]
